FAERS Safety Report 9896485 (Version 2)
Quarter: 2014Q1

REPORT INFORMATION
  Report Type: Spontaneous
  Country: US (occurrence: US)
  Receive Date: 20140213
  Receipt Date: 20140213
  Transmission Date: 20141002
  Serious: No
  Sender: FDA-Public Use
  Company Number: US-BRISTOL-MYERS SQUIBB COMPANY-17464462

PATIENT
  Age: 58 Year
  Sex: Female
  Weight: 58.96 kg

DRUGS (3)
  1. ABATACEPT SUBQ INJECTION 125MG/ML [Suspect]
     Indication: RHEUMATOID ARTHRITIS
     Dosage: LAST INJECTION: 01MAR2013?PREVIOUSLY ON ^ORENCIA FOR INJ^
     Route: 058
     Dates: start: 20120820
  2. LIPITOR [Concomitant]
     Indication: HYPERCHOLESTEROLAEMIA
  3. LOSARTAN [Concomitant]
     Indication: HYPERTENSION
     Dosage: DOSE INCREASED TO 50MG DAILY

REACTIONS (5)
  - Urticaria [Not Recovered/Not Resolved]
  - Nasopharyngitis [Unknown]
  - Chapped lips [Unknown]
  - Lip swelling [Unknown]
  - Incorrect product storage [Unknown]
